FAERS Safety Report 8212492-0 (Version None)
Quarter: 2012Q1

REPORT INFORMATION
  Report Type: 
  Country: None (occurrence: None)
  Receive Date: 20120315
  Receipt Date: 20120309
  Transmission Date: 20120608
  Serious: Yes (Death, Hospitalization)
  Sender: FDA-Public Use
  Company Number: US-GLAXOSMITHKLINE-A0969234A

PATIENT
  Age: 80 Year
  Sex: Male

DRUGS (5)
  1. ALBUTEROL [Concomitant]
  2. ATENOLOL [Concomitant]
  3. ADVAIR DISKUS 100/50 [Suspect]
     Indication: EMPHYSEMA
     Dosage: 1PUFF TWICE PER DAY
     Route: 055
     Dates: start: 20090101
  4. OXYGEN [Concomitant]
  5. MULTI-VITAMINS [Concomitant]

REACTIONS (4)
  - DEPRESSED LEVEL OF CONSCIOUSNESS [None]
  - DEATH [None]
  - CARDIAC ARREST [None]
  - FATIGUE [None]
